FAERS Safety Report 8401298-5 (Version None)
Quarter: 2012Q2

REPORT INFORMATION
  Report Type: 
  Country: None (occurrence: None)
  Receive Date: 20120525
  Receipt Date: 20120514
  Transmission Date: 20120825
  Serious: Yes (Other)
  Sender: FDA-Public Use
  Company Number: AUR-APL-2012-02332

PATIENT
  Age: 33 Year
  Sex: Female

DRUGS (1)
  1. RISPERIDEONE (RISPERIDONE) [Suspect]
     Indication: SCHIZOPHRENIA
     Dosage: 4 TO 6 MG/DAY, ORAL
     Route: 048

REACTIONS (10)
  - HYPERPROLACTINAEMIA [None]
  - OSTEOPOROSIS [None]
  - OLIGOMENORRHOEA [None]
  - ANOVULATORY CYCLE [None]
  - OVARIAN HYPERFUNCTION [None]
  - OSTEOPENIA [None]
  - ACNE [None]
  - WEIGHT INCREASED [None]
  - GALACTORRHOEA [None]
  - BREAST DISCOMFORT [None]
